FAERS Safety Report 8563933-0 (Version None)
Quarter: 2012Q3

REPORT INFORMATION
  Report Type: 
  Country: None (occurrence: None)
  Receive Date: 20120803
  Receipt Date: 20120801
  Transmission Date: 20120928
  Serious: Yes (Other)
  Sender: FDA-Public Use
  Company Number: US-SANOFI-AVENTIS-2012SA055297

PATIENT
  Age: 80 Year
  Sex: Male

DRUGS (6)
  1. ATENOLOL [Concomitant]
  2. ACETYLSALICYLIC ACID SRT [Suspect]
     Route: 065
  3. PLAVIX [Suspect]
     Route: 065
     Dates: start: 20040101
  4. EXCEDRIN EXTRA STRENGTH TABLETS [Suspect]
     Indication: HEADACHE
     Route: 065
  5. LOSARTAN POTASSIUM [Concomitant]
  6. METOLAZONE [Concomitant]

REACTIONS (2)
  - RECTAL FISSURE [None]
  - RECTAL HAEMORRHAGE [None]
